FAERS Safety Report 16142234 (Version 1)
Quarter: 2019Q2

REPORT INFORMATION
  Report Type: Spontaneous
  Country: US (occurrence: US)
  Receive Date: 20190401
  Receipt Date: 20190401
  Transmission Date: 20190711
  Serious: No
  Sender: FDA-Public Use
  Company Number: US-SA-2019SA087236

PATIENT
  Age: 54 Year
  Sex: Female

DRUGS (8)
  1. VITAMINE D [Concomitant]
     Active Substance: CHOLECALCIFEROL
  2. METHOTREXATE. [Concomitant]
     Active Substance: METHOTREXATE
  3. KEVZARA [Suspect]
     Active Substance: SARILUMAB
     Indication: PRODUCT USED FOR UNKNOWN INDICATION
     Dosage: 200 MG, QOW
     Route: 058
     Dates: start: 20190121
  4. ESCITALOPRAM [ESCITALOPRAM OXALATE] [Concomitant]
  5. HYDROCODONE/ACETAMINOPHEN [Concomitant]
     Active Substance: ACETAMINOPHEN\HYDROCODONE
  6. PHENTERMINE HCL [Concomitant]
     Active Substance: PHENTERMINE HYDROCHLORIDE
  7. PREDNISONE. [Concomitant]
     Active Substance: PREDNISONE
  8. FOLIC ACID. [Concomitant]
     Active Substance: FOLIC ACID

REACTIONS (1)
  - Drug ineffective [Not Recovered/Not Resolved]
